FAERS Safety Report 6594896-5 (Version None)
Quarter: 2010Q1

REPORT INFORMATION
  Report Type: 
  Country: None (occurrence: None)
  Receive Date: 20100222
  Receipt Date: 20100203
  Transmission Date: 20100710
  Serious: Yes (Hospitalization, Other)
  Sender: FDA-Public Use
  Company Number: JP-PFIZER INC-2010016791

PATIENT
  Age: 73 Year
  Sex: Male

DRUGS (4)
  1. CABERGOLINE [Suspect]
     Indication: PARKINSON'S DISEASE
     Route: 048
  2. GLUTATHIONE [Suspect]
     Indication: PARKINSON'S DISEASE
     Route: 042
  3. ENTACAPONE [Suspect]
     Indication: PARKINSON'S DISEASE
  4. L-DOPA [Concomitant]
     Indication: PARKINSON'S DISEASE
     Dosage: UNK

REACTIONS (3)
  - BRADYKINESIA [None]
  - GAIT DISTURBANCE [None]
  - LIVER DISORDER [None]
